FAERS Safety Report 9679989 (Version 3)
Quarter: 2014Q1

REPORT INFORMATION
  Report Type: Report from Study
  Country: US (occurrence: US)
  Receive Date: 20131110
  Receipt Date: 20140319
  Transmission Date: 20141002
  Serious: Yes (Death)
  Sender: FDA-Public Use
  Company Number: PHEH2013US023159

PATIENT
  Age: 47 Year
  Sex: Male

DRUGS (4)
  1. GILENYA [Suspect]
     Indication: MULTIPLE SCLEROSIS
     Dosage: 0.5 MG, QD
     Route: 048
     Dates: start: 20130129
  2. BACLOFEN [Concomitant]
  3. DIAZEPAM [Concomitant]
  4. METFORMIN [Concomitant]

REACTIONS (1)
  - Cardiac arrest [Fatal]
